FAERS Safety Report 8974304 (Version 2)
Quarter: 2013Q1

REPORT INFORMATION
  Report Type: Report from Study
  Country: US (occurrence: US)
  Receive Date: 20121220
  Receipt Date: 20130305
  Transmission Date: 20140127
  Serious: Yes (Death, Hospitalization, Other)
  Sender: FDA-Public Use
  Company Number: US-ASTELLAS-2012US012340

PATIENT
  Age: 63 Year
  Sex: Male
  Weight: 95 kg

DRUGS (2)
  1. ERLOTINIB TABLET [Suspect]
     Indication: ADENOCARCINOMA PANCREAS
     Dosage: 100 MG, UID/QD
     Route: 048
     Dates: start: 20120720, end: 20121127
  2. GEMCITABINE [Suspect]
     Indication: ADENOCARCINOMA PANCREAS
     Dosage: 1000 MG/M2, WEEKLY FOR WEEKS 1-3
     Route: 042
     Dates: start: 20120720, end: 20121127

REACTIONS (11)
  - Lymphocyte count decreased [Unknown]
  - Haemolytic uraemic syndrome [Unknown]
  - Pseudomembranous colitis [Unknown]
  - Fatigue [Unknown]
  - Hepatic failure [Fatal]
  - Diarrhoea [Unknown]
  - Malignant neoplasm progression [Unknown]
  - Hepatic encephalopathy [Unknown]
  - Pneumonia [Unknown]
  - Staphylococcal infection [Unknown]
  - Clostridium difficile infection [Unknown]
